FAERS Safety Report 9848824 (Version 2)
Quarter: 2014Q2

REPORT INFORMATION
  Report Type: Spontaneous
  Country: JP (occurrence: JP)
  Receive Date: 20140128
  Receipt Date: 20140421
  Transmission Date: 20141212
  Serious: Yes (Hospitalization)
  Sender: FDA-Public Use
  Company Number: PHJP2014JP000473

PATIENT
  Age: 25 Year
  Sex: Female

DRUGS (6)
  1. TEGRETOL TAB 200MG [Suspect]
     Indication: EPILEPSY
     Dosage: 300 MG, DAILY
  2. VALPROIC ACID [Interacting]
     Indication: EPILEPSY
     Dosage: 1000 MG, DAILY
  3. LAMOTRIGINE [Interacting]
     Indication: EPILEPSY
     Dosage: 350 MG, DAILY
  4. HYDROCORTISONE [Interacting]
     Indication: ADRENAL INSUFFICIENCY
     Dosage: 30 MG DAILY
  5. HYDROCORTISONE [Interacting]
     Dosage: 100 MG DAILY
     Route: 041
  6. FLUDROCORTISONE ACETATE [Interacting]
     Indication: ADRENAL INSUFFICIENCY
     Dosage: 0.05 MG, DAILY

REACTIONS (3)
  - Hyponatraemia [Unknown]
  - C-reactive protein increased [Unknown]
  - Drug interaction [Unknown]
